FAERS Safety Report 16594327 (Version 2)
Quarter: 2019Q3

REPORT INFORMATION
  Report Type: Spontaneous
  Country: CA (occurrence: CA)
  Receive Date: 20190718
  Receipt Date: 20190724
  Transmission Date: 20191004
  Serious: Yes (Hospitalization, Other)
  Sender: FDA-Public Use
  Company Number: CA-SEATTLE GENETICS-2019SGN02420

PATIENT
  Sex: Male

DRUGS (1)
  1. ADCETRIS [Suspect]
     Active Substance: BRENTUXIMAB VEDOTIN
     Indication: PRODUCT USED FOR UNKNOWN INDICATION
     Dosage: UNK
     Route: 042
     Dates: start: 20190701

REACTIONS (11)
  - Anaemia [Unknown]
  - Jaundice [Unknown]
  - Neutropenia [Unknown]
  - Diabetes mellitus inadequate control [Unknown]
  - Gastrointestinal disorder [Unknown]
  - Pyrexia [Unknown]
  - Febrile neutropenia [Not Recovered/Not Resolved]
  - Jaundice cholestatic [Unknown]
  - Hypokalaemia [Unknown]
  - Cholelithiasis [Unknown]
  - Blood glucose increased [Unknown]

NARRATIVE: CASE EVENT DATE: 20190706
